FAERS Safety Report 13641178 (Version 13)
Quarter: 2018Q2

REPORT INFORMATION
  Report Type: Report from Study
  Country: AT (occurrence: AT)
  Receive Date: 20170612
  Receipt Date: 20180410
  Transmission Date: 20180711
  Serious: Yes (Hospitalization)
  Sender: FDA-Public Use
  Company Number: AT-ROCHE-1946518

PATIENT
  Age: 70 Year
  Sex: Female
  Weight: 68 kg

DRUGS (9)
  1. EUTHYROX [Concomitant]
     Active Substance: LEVOTHYROXINE SODIUM
     Route: 048
     Dates: start: 20180308
  2. CLAVAMOX [Concomitant]
     Active Substance: AMOXICILLIN\CLAVULANATE POTASSIUM
     Indication: URINARY TRACT INFECTION
     Route: 048
     Dates: start: 20170630
  3. FOLSAN [Concomitant]
     Active Substance: FOLIC ACID
     Route: 048
     Dates: start: 201606, end: 20171006
  4. CIPROFLOXACIN. [Concomitant]
     Active Substance: CIPROFLOXACIN
     Indication: URINARY TRACT INFECTION
     Route: 048
     Dates: start: 20170721, end: 20170726
  5. ATEZOLIZUMAB. [Suspect]
     Active Substance: ATEZOLIZUMAB
     Indication: MALIGNANT URINARY TRACT NEOPLASM
     Dosage: ON 19/MAY/2017, THE PATIENT RECEIVED MOST RECENT DOSE OF ATEZOLIZUMAB AT 1200 MG.
     Route: 042
     Dates: start: 20170519
  6. CLAVAMOX [Concomitant]
     Active Substance: AMOXICILLIN\CLAVULANATE POTASSIUM
     Route: 048
     Dates: start: 20170830
  7. EUTHYROX [Concomitant]
     Active Substance: LEVOTHYROXINE SODIUM
     Route: 048
  8. CURAM [Concomitant]
     Active Substance: AMOXICILLIN\CLAVULANATE POTASSIUM
     Indication: URINARY TRACT INFECTION
     Route: 042
     Dates: start: 20170604, end: 20170609
  9. EUSAPRIM [Concomitant]
     Active Substance: SULFAMETHOXAZOLE\TRIMETHOPRIM
     Indication: URINARY TRACT INFECTION
     Route: 048
     Dates: start: 20171103, end: 20171107

REACTIONS (1)
  - Thrombocytopenia [Recovered/Resolved]

NARRATIVE: CASE EVENT DATE: 20170530
